FAERS Safety Report 24235133 (Version 2)
Quarter: 2024Q3

REPORT INFORMATION
  Report Type: Report from Study
  Country: AR (occurrence: AR)
  Receive Date: 20240821
  Receipt Date: 20240903
  Transmission Date: 20241017
  Serious: Yes (Life-Threatening, Hospitalization, Other)
  Sender: ELI LILLY AND CO
  Company Number: AR-Merck Healthcare KGaA-2024043303

PATIENT
  Age: 73 Year
  Sex: Male

DRUGS (11)
  1. CETUXIMAB [Suspect]
     Active Substance: CETUXIMAB
     Indication: Squamous cell carcinoma of the tongue
     Dosage: 450 MG, UNKNOWN
     Route: 042
     Dates: start: 20240423
  2. ATORVASTATIN [Concomitant]
     Active Substance: ATORVASTATIN
     Indication: Product used for unknown indication
     Dosage: 10 MG, DAILY
     Route: 065
  3. APIXABAN [Concomitant]
     Active Substance: APIXABAN
     Indication: Product used for unknown indication
     Dosage: 5 MG, OTHER (EVERY 12 HRS)
     Route: 048
  4. LEVOTHYROXINE [Concomitant]
     Active Substance: LEVOTHYROXINE\LEVOTHYROXINE SODIUM
     Indication: Product used for unknown indication
     Dosage: 75 UG, DAILY
     Route: 065
  5. DIPHENHYDRAMINE [Concomitant]
     Active Substance: DIPHENHYDRAMINE
     Indication: Product used for unknown indication
     Dosage: 50 MG, UNK
     Dates: start: 20240529
  6. ONDANSETRON [Concomitant]
     Active Substance: ONDANSETRON
     Indication: Product used for unknown indication
     Dosage: 8 MG, UNK
     Route: 042
     Dates: start: 20240529
  7. CISPLATIN [Suspect]
     Active Substance: CISPLATIN
     Indication: Squamous cell carcinoma of the tongue
     Dosage: UNK UNK, UNKNOWN
     Route: 065
     Dates: start: 2020
  8. DOCETAXEL [Suspect]
     Active Substance: DOCETAXEL\DOCETAXEL ANHYDROUS
     Indication: Squamous cell carcinoma of the tongue
     Dosage: 130 MG, UNKNOWN
     Route: 065
     Dates: start: 20240529
  9. DEXAMETHASONE [Suspect]
     Active Substance: DEXAMETHASONE
     Indication: Product used for unknown indication
     Dosage: 8 MG, UNKNOWN
     Route: 065
     Dates: start: 20240529
  10. DIPHENHYDRAMINE [Concomitant]
     Active Substance: DIPHENHYDRAMINE
     Indication: Product used for unknown indication
     Dosage: 50 MG, UNKNOWN
     Route: 065
     Dates: start: 20240529
  11. ONDANSETRON [Concomitant]
     Active Substance: ONDANSETRON
     Indication: Product used for unknown indication
     Dosage: 8 MG, UNKNOWN
     Route: 042

REACTIONS (8)
  - Distributive shock [Unknown]
  - General physical health deterioration [Unknown]
  - Hypotension [Recovered/Resolved]
  - Carotid artery thrombosis [Unknown]
  - Weight decreased [Unknown]
  - Neutropenia [Unknown]
  - Jugular vein thrombosis [Unknown]
  - Infection [Unknown]

NARRATIVE: CASE EVENT DATE: 20240701
